FAERS Safety Report 18932341 (Version 2)
Quarter: 2021Q1

REPORT INFORMATION
  Report Type: Report from Study
  Country: None (occurrence: US)
  Receive Date: 20210223
  Receipt Date: 20210322
  Transmission Date: 20210420
  Serious: Yes (Other)
  Sender: FDA-Public Use
  Company Number: US-ABBVIE-21K-163-3778628-00

PATIENT
  Age: 59 Year
  Sex: Male
  Weight: 80.81 kg

DRUGS (15)
  1. RETACRIT [Concomitant]
     Active Substance: EPOETIN ALFA-EPBX
     Indication: RED BLOOD CELL ABNORMALITY
     Route: 058
     Dates: start: 2016
  2. EMPLICITI [Concomitant]
     Active Substance: ELOTUZUMAB
     Indication: PLASMA CELL MYELOMA
     Dosage: INFUSED OVER 4 HOURS
     Route: 042
     Dates: start: 20200806, end: 20201028
  3. DIPHENHYDRAMINE HCL [Concomitant]
     Active Substance: DIPHENHYDRAMINE HYDROCHLORIDE
     Indication: PRODUCT USED FOR UNKNOWN INDICATION
     Route: 042
     Dates: start: 20180517
  4. CIMETIDINE [Concomitant]
     Active Substance: CIMETIDINE
     Indication: NAUSEA
     Route: 042
     Dates: start: 20180516
  5. NEUPOGEN [Concomitant]
     Active Substance: FILGRASTIM
     Indication: PRODUCT USED FOR UNKNOWN INDICATION
     Dosage: AS NEEDED BASED ON WHITE BLOOD CELL COUNT
     Route: 058
     Dates: start: 2016
  6. AMBIEN [Concomitant]
     Active Substance: ZOLPIDEM TARTRATE
     Indication: SLEEP DISORDER THERAPY
     Route: 048
     Dates: start: 20200625
  7. EMPLICITI [Concomitant]
     Active Substance: ELOTUZUMAB
     Dosage: INFUSED OVER 4 HOURS
     Route: 042
     Dates: start: 20201028
  8. CIALIS [Concomitant]
     Active Substance: TADALAFIL
     Indication: ERECTILE DYSFUNCTION
     Route: 048
     Dates: start: 20200217
  9. HYDROCODONE [Concomitant]
     Active Substance: HYDROCODONE
     Indication: PAIN
     Dosage: EVERY 4 HOURS AS NEEDED FOR PAIN
     Route: 048
     Dates: start: 2014
  10. VENCLEXTA [Suspect]
     Active Substance: VENETOCLAX
     Indication: PLASMA CELL MYELOMA
     Route: 048
     Dates: start: 20200716, end: 2020
  11. VENCLEXTA [Suspect]
     Active Substance: VENETOCLAX
     Indication: PROSTATE CANCER
     Route: 048
     Dates: start: 20200815
  12. VENCLEXTA [Suspect]
     Active Substance: VENETOCLAX
     Dosage: ONE 100 MG TABLETS
     Route: 048
     Dates: start: 20210210
  13. XGEVA [Concomitant]
     Active Substance: DENOSUMAB
     Indication: PRODUCT USED FOR UNKNOWN INDICATION
     Route: 030
     Dates: start: 2018
  14. ALOXI [Concomitant]
     Active Substance: PALONOSETRON HYDROCHLORIDE
     Indication: NAUSEA
     Route: 042
     Dates: start: 2014
  15. DEXAMETHASONE SODIUM PHOSPHATE. [Concomitant]
     Active Substance: DEXAMETHASONE SODIUM PHOSPHATE
     Indication: PRODUCT USED FOR UNKNOWN INDICATION
     Route: 042
     Dates: start: 20141110

REACTIONS (5)
  - Mobility decreased [Recovered/Resolved]
  - Off label use [Unknown]
  - Pancytopenia [Unknown]
  - Fatigue [Recovered/Resolved]
  - Palpitations [Recovered/Resolved]

NARRATIVE: CASE EVENT DATE: 20200716
